FAERS Safety Report 7889219-5 (Version None)
Quarter: 2011Q4

REPORT INFORMATION
  Report Type: 
  Country: None (occurrence: None)
  Receive Date: 20111103
  Receipt Date: 20111102
  Transmission Date: 20120403
  Serious: Yes (Hospitalization)
  Sender: FDA-Public Use
  Company Number: ES-MERCK-1011ESP00005

PATIENT
  Age: 64 Year
  Sex: Female

DRUGS (4)
  1. INFLUENZA VIRUS VACCINE (UNSPECIFIED) [Concomitant]
     Indication: ANTIVIRAL PROPHYLAXIS
     Route: 065
     Dates: start: 20101014, end: 20101014
  2. ATORVASTATIN CALCIUM [Concomitant]
     Indication: DYSLIPIDAEMIA
     Route: 048
     Dates: end: 20100928
  3. VYTORIN [Suspect]
     Indication: DYSLIPIDAEMIA
     Route: 048
     Dates: start: 20100928, end: 20101024
  4. METFORMIN HYDROCHLORIDE AND VILDAGLIPTIN [Concomitant]
     Indication: DIABETES MELLITUS
     Route: 065

REACTIONS (3)
  - RHABDOMYOLYSIS [None]
  - HYPERPARATHYROIDISM PRIMARY [None]
  - SARCOIDOSIS [None]
